FAERS Safety Report 25776618 (Version 1)
Quarter: 2025Q3

REPORT INFORMATION
  Report Type: Spontaneous
  Country: US (occurrence: US)
  Receive Date: 20250909
  Receipt Date: 20250909
  Transmission Date: 20251020
  Serious: No
  Sender: DOMPE FARMACEUTICI
  Company Number: US-FARMAPROD-202503-0785

PATIENT
  Sex: Female

DRUGS (18)
  1. OXERVATE [Suspect]
     Active Substance: CENEGERMIN-BKBJ
     Indication: Neurotrophic keratopathy
     Route: 047
     Dates: start: 20250303
  2. OXERVATE [Suspect]
     Active Substance: CENEGERMIN-BKBJ
  3. PREDNISONE [Concomitant]
     Active Substance: PREDNISONE
  4. TRAMADOL HCL [Concomitant]
     Active Substance: TRAMADOL HYDROCHLORIDE
  5. DIAZEPAM [Concomitant]
     Active Substance: DIAZEPAM
  6. ANAGRELIDE HYDROCHLORIDE [Concomitant]
     Active Substance: ANAGRELIDE HYDROCHLORIDE
  7. IRON [Concomitant]
     Active Substance: IRON
  8. PREGABALIN [Concomitant]
     Active Substance: PREGABALIN
  9. MAGNESIUM OXIDE [Concomitant]
     Active Substance: MAGNESIUM OXIDE
  10. HYDROXYUREA [Concomitant]
     Active Substance: HYDROXYUREA
  11. ELIQUIS [Concomitant]
     Active Substance: APIXABAN
  12. VALACYCLOVIR [Concomitant]
     Active Substance: VALACYCLOVIR HYDROCHLORIDE
  13. MOXIFLOXACIN [Concomitant]
     Active Substance: MOXIFLOXACIN
  14. RHOPRESSA [Concomitant]
     Active Substance: NETARSUDIL MESYLATE
  15. TRAVOPROST [Concomitant]
     Active Substance: TRAVOPROST
  16. BROMFENAC;PREDNISOLONE [Concomitant]
  17. TIMOLOL [Concomitant]
     Active Substance: TIMOLOL
  18. BRIMONIDINE TARTRATE [Concomitant]
     Active Substance: BRIMONIDINE TARTRATE

REACTIONS (5)
  - Eyelid pain [Not Recovered/Not Resolved]
  - Eyelid abrasion [Not Recovered/Not Resolved]
  - Eye discharge [Unknown]
  - Ocular discomfort [Unknown]
  - Eye pain [Unknown]
